FAERS Safety Report 5957431-8 (Version None)
Quarter: 2008Q4

REPORT INFORMATION
  Report Type: 
  Country: None (occurrence: None)
  Receive Date: 20081114
  Receipt Date: 20081111
  Transmission Date: 20090506
  Serious: Yes (Other)
  Sender: FDA-Public Use
  Company Number: 036569

PATIENT
  Age: 23 Year
  Sex: Female
  Weight: 54.4 kg

DRUGS (2)
  1. PLAN B [Suspect]
     Indication: POST COITAL CONTRACEPTION
     Dosage: TABLET, ORAL
     Route: 048
  2. WELLBUTRIN [Suspect]
     Indication: DEPRESSION
     Dosage: TABLET, QD, ORAL
     Route: 048
     Dates: start: 20040101

REACTIONS (1)
  - CONVULSION [None]
